FAERS Safety Report 11186975 (Version 13)
Quarter: 2017Q4

REPORT INFORMATION
  Report Type: Spontaneous
  Country: CA (occurrence: CA)
  Receive Date: 20150615
  Receipt Date: 20171030
  Transmission Date: 20180320
  Serious: Yes (Hospitalization, Other)
  Sender: FDA-Public Use
  Company Number: CA-ROCHE-1592614

PATIENT
  Age: 62 Year
  Sex: Female

DRUGS (18)
  1. XOLAIR [Suspect]
     Active Substance: OMALIZUMAB
     Route: 058
     Dates: start: 20170626
  2. XOLAIR [Suspect]
     Active Substance: OMALIZUMAB
     Dosage: UNK
     Route: 058
     Dates: start: 20160404
  3. XOLAIR [Suspect]
     Active Substance: OMALIZUMAB
     Dosage: UNK
     Route: 058
     Dates: start: 20170501
  4. XOLAIR [Suspect]
     Active Substance: OMALIZUMAB
     Route: 058
     Dates: start: 20170724
  5. XOLAIR [Suspect]
     Active Substance: OMALIZUMAB
     Indication: ASTHMA
     Dosage: 300 MG, EVERY 4 WEEKS
     Route: 058
     Dates: start: 20131118
  6. XOLAIR [Suspect]
     Active Substance: OMALIZUMAB
     Dosage: UNK
     Route: 058
     Dates: start: 20150112
  7. XOLAIR [Suspect]
     Active Substance: OMALIZUMAB
     Dosage: UNK
     Route: 058
     Dates: start: 20160822
  8. XOLAIR [Suspect]
     Active Substance: OMALIZUMAB
     Dosage: UNK
     Route: 058
     Dates: start: 20131213
  9. XOLAIR [Suspect]
     Active Substance: OMALIZUMAB
     Route: 058
     Dates: start: 20171016
  10. XOLAIR [Suspect]
     Active Substance: OMALIZUMAB
     Dosage: UNK
     Route: 058
     Dates: start: 20150309
  11. XOLAIR [Suspect]
     Active Substance: OMALIZUMAB
     Dosage: UNK
     Route: 058
     Dates: start: 20161209
  12. XOLAIR [Suspect]
     Active Substance: OMALIZUMAB
     Dosage: UNK
     Route: 058
     Dates: start: 20150209
  13. XOLAIR [Suspect]
     Active Substance: OMALIZUMAB
     Dosage: UNK
     Route: 058
     Dates: start: 20170306
  14. XOLAIR [Suspect]
     Active Substance: OMALIZUMAB
     Dosage: UNK
     Route: 058
     Dates: start: 20160307
  15. XOLAIR [Suspect]
     Active Substance: OMALIZUMAB
     Dosage: UNK
     Route: 058
     Dates: start: 20170109
  16. XOLAIR [Suspect]
     Active Substance: OMALIZUMAB
     Dosage: UNK
     Route: 058
     Dates: start: 20160919
  17. XOLAIR [Suspect]
     Active Substance: OMALIZUMAB
     Dosage: UNK
     Route: 058
     Dates: start: 20170206
  18. XOLAIR [Suspect]
     Active Substance: OMALIZUMAB
     Route: 058
     Dates: start: 20170918

REACTIONS (27)
  - Concomitant disease aggravated [Unknown]
  - Nasal congestion [Unknown]
  - Dysphonia [Unknown]
  - Seasonal allergy [Unknown]
  - Breath sounds abnormal [Unknown]
  - Dyspnoea [Recovering/Resolving]
  - Asthma [Unknown]
  - Chest discomfort [Unknown]
  - Sinusitis [Unknown]
  - Incorrect dose administered [Unknown]
  - Back disorder [Unknown]
  - Fatigue [Unknown]
  - Bronchitis [Recovering/Resolving]
  - Influenza [Recovered/Resolved]
  - Productive cough [Unknown]
  - Bronchospasm [Unknown]
  - Pneumonia [Recovered/Resolved]
  - Nasopharyngitis [Unknown]
  - Heart rate increased [Unknown]
  - Body temperature decreased [Recovering/Resolving]
  - Back pain [Unknown]
  - Lacrimation increased [Unknown]
  - Oxygen saturation decreased [Unknown]
  - Hypersensitivity [Unknown]
  - Blood pressure increased [Not Recovered/Not Resolved]
  - Oropharyngeal pain [Unknown]
  - Sense of oppression [Unknown]

NARRATIVE: CASE EVENT DATE: 20131118
